FAERS Safety Report 10174096 (Version 7)
Quarter: 2014Q3

REPORT INFORMATION
  Report Type: Report from Study
  Country: US (occurrence: US)
  Receive Date: 20140515
  Receipt Date: 20140917
  Transmission Date: 20150326
  Serious: Yes (Hospitalization)
  Sender: FDA-Public Use
  Company Number: US-BRISTOL-MYERS SQUIBB COMPANY-20592879

PATIENT
  Age: 55 Year
  Sex: Male
  Weight: 83.07 kg

DRUGS (20)
  1. IPILIMUMAB [Suspect]
     Active Substance: IPILIMUMAB
     Indication: METASTATIC RENAL CELL CARCINOMA
     Dosage: 85.46 MG
     Route: 042
     Dates: start: 20140325
  2. DULOXETINE HCL [Concomitant]
     Active Substance: DULOXETINE HYDROCHLORIDE
  3. BENZONATATE. [Concomitant]
     Active Substance: BENZONATATE
     Dates: start: 20140325
  4. DEXAMETHASONE. [Concomitant]
     Active Substance: DEXAMETHASONE
  5. NORMAL SALINE [Concomitant]
     Active Substance: SODIUM CHLORIDE
  6. TAMIFLU [Concomitant]
     Active Substance: OSELTAMIVIR PHOSPHATE
  7. LEVOFLOXACIN [Concomitant]
     Active Substance: LEVOFLOXACIN
  8. TAMSULOSIN HCL [Concomitant]
     Active Substance: TAMSULOSIN
     Dates: start: 20131210
  9. HEPARIN [Concomitant]
     Active Substance: HEPARIN SODIUM
  10. LORAZEPAM. [Concomitant]
     Active Substance: LORAZEPAM
     Dates: start: 20131210
  11. TRIMETHOPRIM. [Concomitant]
     Active Substance: TRIMETHOPRIM
  12. PREDNISONE. [Concomitant]
     Active Substance: PREDNISONE
  13. ACETAMINOPHEN. [Concomitant]
     Active Substance: ACETAMINOPHEN
     Dates: start: 201305
  14. AUGMENTIN [Concomitant]
     Active Substance: AMOXICILLIN\CLAVULANATE POTASSIUM
  15. METHYLPREDNISOLONE [Concomitant]
     Active Substance: METHYLPREDNISOLONE
  16. NIVOLUMAB [Suspect]
     Active Substance: NIVOLUMAB
     Indication: METASTATIC RENAL CELL CARCINOMA
     Dosage: 256.37 MG
     Route: 042
     Dates: start: 20140325
  17. DESONIDE. [Concomitant]
     Active Substance: DESONIDE
     Dates: start: 20140317
  18. LORAZEPAM. [Concomitant]
     Active Substance: LORAZEPAM
  19. OXYGEN. [Concomitant]
     Active Substance: OXYGEN
  20. OMEPRAZOLE. [Concomitant]
     Active Substance: OMEPRAZOLE

REACTIONS (5)
  - Tumour flare [Recovered/Resolved]
  - Hypoxia [Recovered/Resolved]
  - Pyrexia [Recovered/Resolved]
  - Lung infection [Recovered/Resolved]
  - Chills [Recovered/Resolved]

NARRATIVE: CASE EVENT DATE: 20140329
